FAERS Safety Report 9110356 (Version 1)
Quarter: 2013Q1

REPORT INFORMATION
  Report Type: Spontaneous
  Country: US (occurrence: US)
  Receive Date: 20130219
  Receipt Date: 20130219
  Transmission Date: 20140127
  Serious: No
  Sender: FDA-Public Use
  Company Number: US-BRISTOL-MYERS SQUIBB COMPANY-14944532

PATIENT
  Age: 68 Year
  Sex: Female
  Weight: 48 kg

DRUGS (2)
  1. ORENCIA [Suspect]
     Indication: RHEUMATOID ARTHRITIS
     Dosage: STARTED COUPLE OF YEARS AGO- INTERRUPTED- RESTARTED IN FEB/MAR-2012
     Route: 042
  2. ACTEMRA [Suspect]

REACTIONS (3)
  - Sinus headache [Unknown]
  - Drug ineffective [Unknown]
  - Hepatic enzyme increased [Unknown]
